FAERS Safety Report 5836636-0 (Version None)
Quarter: 2008Q3

REPORT INFORMATION
  Report Type: 
  Country: None (occurrence: None)
  Receive Date: 20080807
  Receipt Date: 20080731
  Transmission Date: 20090109
  Serious: Yes (Hospitalization)
  Sender: FDA-Public Use
  Company Number: JP-BAYER-200811530BYL

PATIENT
  Age: 54 Year
  Sex: Male
  Weight: 73 kg

DRUGS (5)
  1. ASPIRIN [Suspect]
     Indication: ANGINA UNSTABLE
     Dosage: TOTAL DAILY DOSE: 100 MG  UNIT DOSE: 100 MG
     Route: 048
     Dates: start: 20070306, end: 20070406
  2. PANALDINE [Suspect]
     Indication: ANGINA UNSTABLE
     Dosage: TOTAL DAILY DOSE: 20 MG
     Route: 048
     Dates: start: 20070306, end: 20070406
  3. HERBESSER R [Concomitant]
     Indication: DRUG USE FOR UNKNOWN INDICATION
     Dosage: TOTAL DAILY DOSE: 100 MG
     Route: 048
     Dates: start: 20070306, end: 20070406
  4. PRAVASTATIN [Concomitant]
     Indication: DRUG USE FOR UNKNOWN INDICATION
     Dosage: TOTAL DAILY DOSE: 10 MG
     Route: 048
     Dates: start: 20070306, end: 20070406
  5. ITOROL [Concomitant]
     Indication: DRUG USE FOR UNKNOWN INDICATION
     Route: 048
     Dates: start: 20070306, end: 20070406

REACTIONS (1)
  - AGRANULOCYTOSIS [None]
